FAERS Safety Report 4819640-0 (Version None)
Quarter: 2005Q4

REPORT INFORMATION
  Report Type: 
  Country: None (occurrence: None)
  Receive Date: 20051102
  Receipt Date: 20051017
  Transmission Date: 20060501
  Serious: Yes (Hospitalization, Other)
  Sender: FDA-Public Use
  Company Number: 10018

PATIENT
  Age: 5 Month
  Sex: Female
  Weight: 7.6 kg

DRUGS (2)
  1. VINCRISTINE [Suspect]
     Indication: RHABDOMYOSARCOMA
     Dosage: 1.5 MG/M2 WEEKLY
  2. DACTINOMYCIN [Suspect]
     Indication: RHABDOMYOSARCOMA
     Dosage: 1.5 MG.M2 Q3W

REACTIONS (10)
  - ANAEMIA [None]
  - ASCITES [None]
  - COAGULOPATHY [None]
  - HEPATOMEGALY [None]
  - HYPERBILIRUBINAEMIA [None]
  - PYREXIA [None]
  - THROMBOCYTOPENIA [None]
  - TRANSAMINASES INCREASED [None]
  - VENOOCCLUSIVE DISEASE [None]
  - WEIGHT INCREASED [None]
